FAERS Safety Report 13662648 (Version 1)
Quarter: 2017Q2

REPORT INFORMATION
  Report Type: Spontaneous
  Country: US (occurrence: US)
  Receive Date: 20170616
  Receipt Date: 20170616
  Transmission Date: 20170830
  Serious: Yes (Life-Threatening, Hospitalization)
  Sender: FDA-Public Use
  Company Number: None

PATIENT
  Age: 30 Year
  Sex: Male
  Weight: 107.2 kg

DRUGS (1)
  1. GADOPENTETATE DIMEGLUMINE. [Suspect]
     Active Substance: GADOPENTETATE DIMEGLUMINE
     Route: 042
     Dates: start: 20160921, end: 20160921

REACTIONS (4)
  - Anaphylactic reaction [None]
  - Hypertension [None]
  - Contrast media reaction [None]
  - Headache [None]

NARRATIVE: CASE EVENT DATE: 20160921
